FAERS Safety Report 9003993 (Version 3)
Quarter: 2013Q1

REPORT INFORMATION
  Report Type: Spontaneous
  Country: US (occurrence: US)
  Receive Date: 20130108
  Receipt Date: 20130205
  Transmission Date: 20140127
  Serious: Yes (Other)
  Sender: FDA-Public Use
  Company Number: US-ALEXION-A201202520

PATIENT
  Age: 19 Year
  Sex: Female
  Weight: 84 kg

DRUGS (9)
  1. SOLIRIS 300MG [Suspect]
     Indication: HAEMOLYTIC URAEMIC SYNDROME
     Dosage: 900 MG, QW X 4
     Route: 042
     Dates: start: 20120607
  2. SOLIRIS 300MG [Suspect]
     Dosage: 1200 MG, Q2W
     Route: 042
     Dates: start: 20120629
  3. ADVIL [Concomitant]
     Dosage: 100 MG, PRN
     Route: 048
  4. BIOTIN [Concomitant]
     Dosage: 5 MG, QD
     Route: 048
  5. CETIRIZINE HYDROCHLORIDE [Concomitant]
     Dosage: 5 MG, QD
     Route: 048
  6. CIPRO [Concomitant]
     Dosage: 500 MG, PRN
     Route: 048
  7. VITAMIN B12 [Concomitant]
     Dosage: 2500 ?G, AS DIRECTED
     Route: 048
  8. VITAMIN D3 [Concomitant]
     Dosage: 2000 IU, QD
  9. ZINC [Concomitant]
     Dosage: 50 MG, QD

REACTIONS (3)
  - Suicidal ideation [Recovered/Resolved]
  - Dyspnoea [Unknown]
  - Dysgeusia [Recovered/Resolved]
